FAERS Safety Report 25941471 (Version 2)
Quarter: 2025Q4

REPORT INFORMATION
  Report Type: Spontaneous
  Country: CN (occurrence: CN)
  Receive Date: 20251020
  Receipt Date: 20251105
  Transmission Date: 20260117
  Serious: Yes (Hospitalization, Other)
  Sender: NOVO NORDISK
  Company Number: CN-NOVOPROD-1540197

PATIENT
  Age: 46 Year
  Sex: Female
  Weight: 47 kg

DRUGS (3)
  1. TRESIBA [Suspect]
     Active Substance: INSULIN DEGLUDEC
     Indication: Type 1 diabetes mellitus
     Dosage: APPROXIMATELY 10 YEARS, 9U EACH TIME.
  2. NOVORAPID [Suspect]
     Active Substance: INSULIN ASPART
     Indication: Type 1 diabetes mellitus
     Dosage: 24 IU, QD (6 UNITS IN THE MORNING, 9 UNITS AT NOON AND EVENIN)
     Dates: start: 2010
  3. METHYLCOBALAMIN [Concomitant]
     Active Substance: METHYLCOBALAMIN
     Indication: Neuropathy peripheral
     Dosage: THE DOCTOR PRESCRIBED IN THE PAST ONE OR TWO YEARS

REACTIONS (5)
  - Parathyroid tumour benign [Recovered/Resolved]
  - Coma [Unknown]
  - Blood glucose fluctuation [Unknown]
  - Hypoglycaemia [Recovered/Resolved]
  - Blood glucose fluctuation [Unknown]

NARRATIVE: CASE EVENT DATE: 20230101
